FAERS Safety Report 11611503 (Version 7)
Quarter: 2015Q4

REPORT INFORMATION
  Report Type: Spontaneous
  Country: IT (occurrence: IT)
  Receive Date: 20151008
  Receipt Date: 20151118
  Transmission Date: 20160304
  Serious: Yes (Hospitalization)
  Sender: FDA-Public Use
  Company Number: IT-SA-2015SA152346

PATIENT
  Age: 51 Year
  Sex: Female

DRUGS (2)
  1. AUBAGIO [Suspect]
     Active Substance: TERIFLUNOMIDE
     Route: 065
     Dates: start: 20150303, end: 20150826
  2. EUTIROX [Concomitant]
     Active Substance: LEVOTHYROXINE SODIUM

REACTIONS (12)
  - Fatigue [Unknown]
  - Syncope [Unknown]
  - Blood lactate dehydrogenase increased [Recovering/Resolving]
  - Red blood cell schistocytes present [Recovering/Resolving]
  - Diarrhoea [Recovering/Resolving]
  - Asthenia [Recovering/Resolving]
  - Confusional state [Unknown]
  - Renal failure [Recovering/Resolving]
  - Nausea [Unknown]
  - Vomiting [Unknown]
  - Thrombotic thrombocytopenic purpura [Recovering/Resolving]
  - Abdominal pain [Recovering/Resolving]

NARRATIVE: CASE EVENT DATE: 2015
